FAERS Safety Report 8555257-2 (Version None)
Quarter: 2012Q3

REPORT INFORMATION
  Report Type: 
  Country: None (occurrence: None)
  Receive Date: 20120731
  Receipt Date: 20110929
  Transmission Date: 20120928
  Serious: No
  Sender: FDA-Public Use
  Company Number: US-ASTRAZENECA-2011SE51768

PATIENT
  Age: 44 Year
  Sex: Male
  Weight: 85.3 kg

DRUGS (7)
  1. SEROQUEL [Suspect]
     Indication: AFFECTIVE DISORDER
     Route: 048
     Dates: start: 20110720
  2. SEROQUEL [Suspect]
     Route: 048
  3. PRILOSEC [Suspect]
     Route: 048
  4. TRAZODONE HYDROCHLORIDE [Concomitant]
     Indication: SLEEP DISORDER
  5. PROZAC [Concomitant]
  6. NEXIUM [Concomitant]
  7. DIAZEPAM [Concomitant]

REACTIONS (6)
  - DRUG INEFFECTIVE [None]
  - TACHYPHRENIA [None]
  - DISTURBANCE IN ATTENTION [None]
  - NIGHTMARE [None]
  - DYSPEPSIA [None]
  - OFF LABEL USE [None]
